FAERS Safety Report 9057877 (Version 2)
Quarter: 2013Q1

REPORT INFORMATION
  Report Type: Spontaneous
  Country: DE (occurrence: DE)
  Receive Date: 20130210
  Receipt Date: 20130226
  Transmission Date: 20140127
  Serious: No
  Sender: FDA-Public Use
  Company Number: DE-AMGEN-DEUSP2013009125

PATIENT
  Age: 72 Year
  Sex: Male
  Weight: 75 kg

DRUGS (1)
  1. VECTIBIX [Suspect]
     Indication: COLORECTAL CANCER
     Dosage: UNK UNK, Q14D
     Route: 042
     Dates: start: 20130122

REACTIONS (2)
  - Acne [Recovering/Resolving]
  - Skin reaction [Unknown]
